FAERS Safety Report 11242435 (Version 1)
Quarter: 2015Q3

REPORT INFORMATION
  Report Type: Spontaneous
  Country: PH (occurrence: PH)
  Receive Date: 20150707
  Receipt Date: 20150707
  Transmission Date: 20151125
  Serious: Yes (Death)
  Sender: FDA-Public Use
  Company Number: PH-MERCK-1507PHL001866

PATIENT
  Age: 71 Year
  Sex: Male

DRUGS (1)
  1. JANUVIA [Suspect]
     Active Substance: SITAGLIPTIN PHOSPHATE
     Indication: DIABETES MELLITUS
     Dosage: ONE TABLET, ONCE A DAY
     Route: 048

REACTIONS (2)
  - Myocardial infarction [Fatal]
  - Blood glucose increased [Unknown]

NARRATIVE: CASE EVENT DATE: 20150425
